FAERS Safety Report 8844500 (Version 3)
Quarter: 2013Q1

REPORT INFORMATION
  Report Type: Spontaneous
  Country: FR (occurrence: None)
  Receive Date: 20121012
  Receipt Date: 20121116
  Transmission Date: 20140127
  Serious: Yes (Other)
  Sender: FDA-Public Use
  Company Number: NGX_01407_2012

PATIENT
  Sex: Female

DRUGS (4)
  1. QUTENZA [Suspect]
     Indication: NEURALGIA
     Dosage: 1 DF, [PATCH] TOPICAL
     Route: 061
  2. TRAMADOL [Concomitant]
  3. TRIMEBUTINE [Concomitant]
  4. VERSATIS [Concomitant]

REACTIONS (1)
  - Tumour marker increased [None]
